FAERS Safety Report 5653256-1 (Version None)
Quarter: 2008Q1

REPORT INFORMATION
  Report Type: 
  Country: None (occurrence: None)
  Receive Date: 20080131
  Receipt Date: 20071108
  Transmission Date: 20080703
  Serious: No
  Sender: FDA-Public Use
  Company Number: US200711002028

PATIENT
  Age: 48 Year
  Sex: Male

DRUGS (5)
  1. BYETTA [Suspect]
     Indication: TYPE 2 DIABETES MELLITUS
     Dosage: 5 UG, 2/D, SUBCUTANEOUS; 10 UG, 2/D, SUBCUTANROUS
     Route: 058
     Dates: start: 20071011, end: 20071101
  2. BYETTA [Suspect]
     Indication: TYPE 2 DIABETES MELLITUS
     Dosage: 5 UG, 2/D, SUBCUTANEOUS; 10 UG, 2/D, SUBCUTANROUS
     Route: 058
     Dates: start: 20071102
  3. EXENATIDE 5MCG PEN,DISPOSABLE DEVICE 9EXENATIDE PEN (5MCG)) PEN,DISPOS [Concomitant]
  4. EXENATIDE 10MCG PEN, DISPOSABLE DEVICE (EXENATIDE PEN (10MCG))PEN,DISP [Concomitant]
  5. METFORMIN HCL [Concomitant]

REACTIONS (1)
  - CORTISOL FREE URINE INCREASED [None]
